FAERS Safety Report 6985650-0 (Version None)
Quarter: 2010Q3

REPORT INFORMATION
  Report Type: 
  Country: None (occurrence: None)
  Receive Date: 20100915
  Receipt Date: 20100905
  Transmission Date: 20110219
  Serious: Yes (Other)
  Sender: FDA-Public Use
  Company Number: US-BAXTER-2010BH023145

PATIENT

DRUGS (1)
  1. LIDOCAINE HCL IN 5% DEXTROSE INJECTION IN PLASTIC CONTAINER [Suspect]
     Indication: ANALGESIC THERAPY
     Route: 042

REACTIONS (4)
  - DYSPNOEA [None]
  - HEART RATE INCREASED [None]
  - HYPERAESTHESIA [None]
  - HYPOAESTHESIA ORAL [None]
